FAERS Safety Report 9670445 (Version 2)
Quarter: 2013Q4

REPORT INFORMATION
  Report Type: Spontaneous
  Country: CL (occurrence: CL)
  Receive Date: 20131106
  Receipt Date: 20131119
  Transmission Date: 20140711
  Serious: Yes (Hospitalization, Other)
  Sender: FDA-Public Use
  Company Number: CL-AMGEN-CHLSP2013077492

PATIENT
  Sex: Male

DRUGS (5)
  1. ENBREL [Suspect]
     Indication: JUVENILE IDIOPATHIC ARTHRITIS
     Dosage: 50 MG, WEEKLY
     Route: 058
     Dates: start: 201304, end: 201308
  2. LEFLUNOMIDE [Concomitant]
     Dosage: UNK
  3. PREDNISONE [Concomitant]
     Dosage: UNK
  4. PLAQUINOL [Concomitant]
     Dosage: UNK
  5. CELECOXIB [Concomitant]
     Dosage: UNK

REACTIONS (9)
  - Acute abdomen [Not Recovered/Not Resolved]
  - Intestinal perforation [Not Recovered/Not Resolved]
  - Abdominal wound dehiscence [Not Recovered/Not Resolved]
  - Malnutrition [Not Recovered/Not Resolved]
  - Peritonitis [Not Recovered/Not Resolved]
  - Septic shock [Not Recovered/Not Resolved]
  - Abdominal abscess [Not Recovered/Not Resolved]
  - Superinfection bacterial [Not Recovered/Not Resolved]
  - Candida infection [Not Recovered/Not Resolved]
